FAERS Safety Report 24171471 (Version 2)
Quarter: 2024Q3

REPORT INFORMATION
  Report Type: Spontaneous
  Country: FR (occurrence: FR)
  Receive Date: 20240805
  Receipt Date: 20240809
  Transmission Date: 20241016
  Serious: Yes (Other)
  Sender: BAXTER
  Company Number: FR-EMA-2024723-AUTODUP-1721768723401

PATIENT
  Age: 69 Year

DRUGS (5)
  1. DOXORUBICIN [Suspect]
     Active Substance: DOXORUBICIN
     Indication: Hodgkin^s disease
     Dosage: FIRST-LINE TREATMENT WITH BRENTUXIMAB-AVD, INTERRUPTED AFTER 1 CYCLE
     Route: 065
  2. BRENTUXIMAB [Suspect]
     Active Substance: BRENTUXIMAB
     Indication: Hodgkin^s disease
     Dosage: FIRST-LINE TREATMENT WITH BRENTUXIMAB-AVD, INTERRUPTED AFTER 1 CYCLE
     Route: 065
  3. BRENTUXIMAB [Suspect]
     Active Substance: BRENTUXIMAB
     Dosage: TREATMENT WAS CONTINUED FOR 6 CYCLES
     Route: 065
  4. DACARBAZINE [Suspect]
     Active Substance: DACARBAZINE
     Indication: Hodgkin^s disease
     Dosage: FIRST-LINE TREATMENT WITH BRENTUXIMAB-AVD, INTERRUPTED AFTER 1 CYCLE
     Route: 065
  5. VINBLASTINE [Suspect]
     Active Substance: VINBLASTINE
     Indication: Hodgkin^s disease
     Dosage: FIRST-LINE TREATMENT WITH BRENTUXIMAB-AVD, INTERRUPTED AFTER 1 CYCLE
     Route: 065

REACTIONS (2)
  - Bone marrow failure [Unknown]
  - Escherichia sepsis [Unknown]
